FAERS Safety Report 17447378 (Version 1)
Quarter: 2020Q1

REPORT INFORMATION
  Report Type: Spontaneous
  Country: CA (occurrence: CA)
  Receive Date: 20200221
  Receipt Date: 20200221
  Transmission Date: 20200409
  Serious: Yes (Hospitalization, Other)
  Sender: FDA-Public Use
  Company Number: CA-PFIZER INC-2020075538

PATIENT
  Sex: Male

DRUGS (7)
  1. PREVACID [Concomitant]
     Active Substance: LANSOPRAZOLE
  2. SULFASALAZINE. [Suspect]
     Active Substance: SULFASALAZINE
     Route: 065
  3. CIMZIA [Suspect]
     Active Substance: CERTOLIZUMAB PEGOL
     Dosage: UNK
     Route: 065
  4. HUMIRA [Suspect]
     Active Substance: ADALIMUMAB
     Dosage: UNK
     Route: 058
  5. TALTZ [Suspect]
     Active Substance: IXEKIZUMAB
     Dosage: 80 MG, UNK
     Route: 065
  6. METHOTREXATE SODIUM. [Suspect]
     Active Substance: METHOTREXATE SODIUM
     Route: 065
  7. CANNABIS SATIVA [Concomitant]
     Active Substance: CANNABIS SATIVA FLOWERING TOP

REACTIONS (12)
  - Retching [Unknown]
  - Cognitive disorder [Unknown]
  - Hepatic failure [Unknown]
  - Seizure [Unknown]
  - Abdominal distension [Unknown]
  - Confusional state [Unknown]
  - Hyperhidrosis [Unknown]
  - Splenomegaly [Unknown]
  - Decreased appetite [Unknown]
  - Hepatotoxicity [Unknown]
  - Vomiting [Unknown]
  - Weight decreased [Unknown]
